FAERS Safety Report 9411095 (Version 1)
Quarter: 2013Q3

REPORT INFORMATION
  Report Type: Spontaneous
  Country: US (occurrence: US)
  Receive Date: 20130720
  Receipt Date: 20130720
  Transmission Date: 20140515
  Serious: Yes (Hospitalization, Disabling)
  Sender: FDA-Public Use
  Company Number: US-MYLANLABS-2013S1013069

PATIENT
  Age: 56 Year
  Sex: Female
  Weight: 81.65 kg

DRUGS (3)
  1. MERCAPTOPURINE [Suspect]
     Indication: CROHN^S DISEASE
     Route: 048
     Dates: start: 201002, end: 201211
  2. MERCAPTOPURINE [Suspect]
     Indication: OFF LABEL USE
     Route: 048
     Dates: start: 201002, end: 201211
  3. PENTASA [Suspect]
     Indication: CROHN^S DISEASE

REACTIONS (15)
  - Bone marrow failure [Recovered/Resolved]
  - Immune system disorder [Recovered/Resolved]
  - Liver disorder [Recovered/Resolved]
  - Hallucination [Recovered/Resolved]
  - Amnesia [Not Recovered/Not Resolved]
  - Confusional state [Not Recovered/Not Resolved]
  - Disorientation [Recovered/Resolved]
  - Asthenia [Recovered/Resolved]
  - Dysarthria [Recovered/Resolved]
  - Bedridden [Recovered/Resolved]
  - Abdominal pain [Recovered/Resolved]
  - Blood count abnormal [Recovered/Resolved]
  - Oxygen saturation abnormal [Recovered/Resolved]
  - Stomatitis [Recovered/Resolved]
  - Medication error [Recovered/Resolved]
